FAERS Safety Report 9087770 (Version 1)
Quarter: 2013Q1

REPORT INFORMATION
  Report Type: Spontaneous
  Country: CN (occurrence: CN)
  Receive Date: 20130201
  Receipt Date: 20130201
  Transmission Date: 20140127
  Serious: Yes (Other)
  Sender: FDA-Public Use
  Company Number: CN-JNJFOC-20130112875

PATIENT
  Sex: 0

DRUGS (8)
  1. DOXORUBICIN [Suspect]
     Indication: HODGKIN^S DISEASE
     Dosage: ON DAY 1
     Route: 042
  2. DOXORUBICIN [Suspect]
     Indication: NON-HODGKIN^S LYMPHOMA
     Dosage: ON DAY 1
     Route: 042
  3. GEMCITABINE [Suspect]
     Indication: HODGKIN^S DISEASE
     Dosage: ON DAY 1
     Route: 042
  4. GEMCITABINE [Suspect]
     Indication: NON-HODGKIN^S LYMPHOMA
     Dosage: ON DAY 1
     Route: 042
  5. VINORELBINE [Suspect]
     Indication: NON-HODGKIN^S LYMPHOMA
     Dosage: ON DAY 1
     Route: 042
  6. VINORELBINE [Suspect]
     Indication: HODGKIN^S DISEASE
     Dosage: ON DAY 1
     Route: 042
  7. 5-HT3 SEROTONIN ANTAGONIST [Concomitant]
     Indication: PROPHYLAXIS
     Dosage: IN GVD SALVAGE REGIMEN
     Route: 065
  8. DEXAMETHASONE [Concomitant]
     Indication: PROPHYLAXIS
     Dosage: IN GVD SALVAGE REGIMEN
     Route: 042

REACTIONS (17)
  - Non-Hodgkin^s lymphoma [Unknown]
  - Hodgkin^s disease [Unknown]
  - Febrile neutropenia [Recovered/Resolved]
  - Electrocardiogram ST-T segment elevation [Recovered/Resolved]
  - Bone marrow failure [Unknown]
  - Neutropenia [Recovered/Resolved]
  - Anaemia [Recovered/Resolved]
  - Thrombocytopenia [Recovered/Resolved]
  - Palmar-plantar erythrodysaesthesia syndrome [Unknown]
  - Blood creatinine increased [Recovered/Resolved]
  - Aspartate aminotransferase increased [Recovered/Resolved]
  - Nausea [Recovered/Resolved]
  - Vomiting [Recovered/Resolved]
  - Alopecia [Recovered/Resolved]
  - Mucosal inflammation [Recovered/Resolved]
  - Alanine aminotransferase increased [Recovered/Resolved]
  - Blood urea increased [Recovered/Resolved]
